FAERS Safety Report 6643937-5 (Version None)
Quarter: 2010Q1

REPORT INFORMATION
  Report Type: 
  Country: None (occurrence: None)
  Receive Date: 20100322
  Receipt Date: 20100311
  Transmission Date: 20100710
  Serious: Yes (Death, Hospitalization, Other)
  Sender: FDA-Public Use
  Company Number: US-AMGEN-US385850

PATIENT
  Sex: Male
  Weight: 56.727 kg

DRUGS (17)
  1. NPLATE [Suspect]
     Indication: IDIOPATHIC THROMBOCYTOPENIC PURPURA
     Dates: start: 20100106, end: 20100113
  2. CORTICOSTEROIDS [Concomitant]
     Dates: start: 20091218
  3. IMMUNE GLOBULIN (HUMAN) [Concomitant]
     Dates: start: 20090201
  4. RITUXIMAB [Concomitant]
     Dates: start: 20091222
  5. CYCLOPHOSPHAMIDE [Concomitant]
     Route: 042
     Dates: start: 20100102, end: 20100102
  6. VINCRISTINE [Concomitant]
     Route: 042
     Dates: start: 20100102, end: 20100102
  7. TYLENOL-500 [Concomitant]
  8. PREDNISONE [Concomitant]
  9. SYMBICORT [Concomitant]
     Route: 055
  10. LEVOFLOXACIN [Concomitant]
  11. FLOMAX [Concomitant]
  12. ALBUTEROL [Concomitant]
     Route: 055
  13. FOLIC ACID [Concomitant]
  14. CALCIUM [Concomitant]
  15. FLUOROURACIL [Concomitant]
  16. MULTI-VITAMINS [Concomitant]
  17. OXYGEN [Concomitant]
     Route: 045

REACTIONS (4)
  - DRUG INEFFECTIVE [None]
  - PLATELET COUNT DECREASED [None]
  - PULMONARY HAEMORRHAGE [None]
  - THROMBOCYTOPENIA [None]
